FAERS Safety Report 4726396-9 (Version None)
Quarter: 2005Q3

REPORT INFORMATION
  Report Type: 
  Country: None (occurrence: None)
  Receive Date: 20050726
  Receipt Date: 20050711
  Transmission Date: 20060218
  Serious: Yes (Hospitalization)
  Sender: FDA-Public Use
  Company Number: SGB1-2005-00322

PATIENT
  Sex: Female

DRUGS (1)
  1. LANTHANUM CARBONATE(LANTHANUM CARBONATE UNK) TABLET CHEWABLE [Suspect]
     Indication: HYPERPHOSPHATAEMIA
     Dosage: ORAL
     Route: 048

REACTIONS (1)
  - PERIPHERAL OCCLUSIVE DISEASE [None]
